FAERS Safety Report 8821013 (Version 1)
Quarter: 2012Q4

REPORT INFORMATION
  Report Type: 
  Country: FR (occurrence: FR)
  Receive Date: 20121002
  Receipt Date: 20121002
  Transmission Date: 20130627
  Serious: Yes (Hospitalization, Other)
  Sender: FDA-Public Use
  Company Number: FR-ROCHE-1135108

PATIENT
  Age: 59 Year
  Sex: Female

DRUGS (6)
  1. AVASTIN [Suspect]
     Indication: BREAST CANCER
     Route: 042
     Dates: start: 20111215, end: 20120412
  2. PACLITAXEL [Suspect]
     Indication: BREAST CANCER
     Route: 042
     Dates: start: 20111215, end: 20120426
  3. ONDANSETRON [Concomitant]
     Route: 042
  4. RANITIDINE [Concomitant]
     Route: 042
  5. POLARAMINE [Concomitant]
     Route: 042
  6. METHYLPREDNISOLONE [Concomitant]
     Route: 042

REACTIONS (1)
  - General physical health deterioration [Recovered/Resolved]
